FAERS Safety Report 20830693 (Version 4)
Quarter: 2022Q2

REPORT INFORMATION
  Report Type: Report from Study
  Country: CH (occurrence: CH)
  Receive Date: 20220515
  Receipt Date: 20220602
  Transmission Date: 20220721
  Serious: Yes (Life-Threatening, Hospitalization)
  Sender: FDA-Public Use
  Company Number: CH-BAYER-2022A067490

PATIENT
  Age: 67 Year
  Sex: Male
  Weight: 65 kg

DRUGS (16)
  1. RIVAROXABAN [Suspect]
     Active Substance: RIVAROXABAN
     Indication: Coronary artery disease
     Dosage: 2.5 MG, BID
     Route: 048
     Dates: start: 20211209, end: 20220119
  2. RIVAROXABAN [Suspect]
     Active Substance: RIVAROXABAN
     Indication: Peripheral arterial occlusive disease
     Route: 048
  3. RIVAROXABAN [Suspect]
     Active Substance: RIVAROXABAN
     Indication: Cardiovascular event prophylaxis
     Route: 048
  4. ASPIRIN [Suspect]
     Active Substance: ASPIRIN
     Indication: Coronary artery disease
     Dosage: 100 MG, QD
     Route: 065
     Dates: start: 20211125, end: 20220506
  5. ASPIRIN [Suspect]
     Active Substance: ASPIRIN
     Indication: Peripheral arterial occlusive disease
  6. ASPIRIN [Suspect]
     Active Substance: ASPIRIN
     Indication: Cardiovascular event prophylaxis
  7. THIAMINE HYDROCHLORIDE [Concomitant]
     Active Substance: THIAMINE HYDROCHLORIDE
     Dosage: 100 MG, TID
  8. ATORVASTATIN [Concomitant]
     Active Substance: ATORVASTATIN
     Dosage: 40 MG, QD
     Dates: start: 20211125
  9. PANTOPRAZOLE [Concomitant]
     Active Substance: PANTOPRAZOLE
     Dosage: 40 MG, QD
  10. FOLIC ACID [Concomitant]
     Active Substance: FOLIC ACID
     Dosage: 5 MG, QD
     Dates: start: 2021
  11. BECOZYME [BIOTIN;CALCIUM PANTOTHENATE;CYANOCOBALAMIN;NICOTINAMIDE; [Concomitant]
     Dosage: 1 DF, QD
  12. CANDESARTAN CILEXETIL [Concomitant]
     Active Substance: CANDESARTAN CILEXETIL
     Dosage: 8 MG, QD
  13. HEPARIN [Concomitant]
     Active Substance: HEPARIN SODIUM
     Dosage: 5000 IU, QD
     Dates: start: 20211208, end: 20211208
  14. CLOPIDOGREL [Concomitant]
     Active Substance: CLOPIDOGREL BISULFATE
     Indication: Peripheral arterial occlusive disease
     Dosage: 75 MG, QD
     Dates: start: 20220506
  15. CLOPIDOGREL [Concomitant]
     Active Substance: CLOPIDOGREL BISULFATE
     Indication: Coronary artery disease
  16. CLOPIDOGREL [Concomitant]
     Active Substance: CLOPIDOGREL BISULFATE
     Indication: Cardiovascular event prophylaxis

REACTIONS (3)
  - Iron deficiency anaemia [Unknown]
  - Blood loss anaemia [Unknown]
  - Gastrointestinal angiodysplasia [Not Recovered/Not Resolved]

NARRATIVE: CASE EVENT DATE: 20220118
